FAERS Safety Report 12927916 (Version 1)
Quarter: 2016Q4

REPORT INFORMATION
  Report Type: Spontaneous
  Country: PT (occurrence: PT)
  Receive Date: 20161110
  Receipt Date: 20161110
  Transmission Date: 20170207
  Serious: Yes (Hospitalization)
  Sender: FDA-Public Use
  Company Number: PHHY2016PT150052

PATIENT
  Age: 58 Year
  Sex: Male

DRUGS (5)
  1. PAZOPANIB [Suspect]
     Active Substance: PAZOPANIB
     Dosage: 400 MG, QD
     Route: 065
     Dates: start: 20150521
  2. PAZOPANIB [Suspect]
     Active Substance: PAZOPANIB
     Indication: METASTATIC RENAL CELL CARCINOMA
     Dosage: 800 MG, QD
     Route: 065
     Dates: start: 20141214, end: 20150507
  3. PAZOPANIB [Suspect]
     Active Substance: PAZOPANIB
     Dosage: 800 MG, QD
     Route: 065
     Dates: start: 20150708
  4. PAZOPANIB [Suspect]
     Active Substance: PAZOPANIB
     Dosage: 800 MG, QD
     Route: 065
     Dates: start: 201509
  5. PAZOPANIB [Suspect]
     Active Substance: PAZOPANIB
     Dosage: 800 MG, QD
     Route: 065
     Dates: start: 20150521, end: 20150521

REACTIONS (13)
  - Pulmonary mass [Unknown]
  - Hepatic lesion [Unknown]
  - Dysphonia [Unknown]
  - Weight decreased [Recovering/Resolving]
  - Decreased appetite [Recovering/Resolving]
  - Neck pain [Unknown]
  - Skin lesion [Unknown]
  - Fatigue [Recovering/Resolving]
  - Staphylococcal infection [Unknown]
  - Toxicity to various agents [Recovering/Resolving]
  - Dehydration [Unknown]
  - Vomiting [Unknown]
  - Lymphadenopathy mediastinal [Unknown]

NARRATIVE: CASE EVENT DATE: 20141220
